FAERS Safety Report 12870635 (Version 1)
Quarter: 2016Q4

REPORT INFORMATION
  Report Type: Report from Study
  Country: US (occurrence: US)
  Receive Date: 20161021
  Receipt Date: 20161021
  Transmission Date: 20170207
  Serious: Yes (Death)
  Sender: FDA-Public Use
  Company Number: US-PFIZER INC-2016323229

PATIENT

DRUGS (11)
  1. VINCRISTINE SULFATE. [Suspect]
     Active Substance: VINCRISTINE SULFATE
     Indication: BURKITT^S LYMPHOMA
     Dosage: 1.5 MG/M2, CYCLIC (ON DAYS 1 AND 8 DURING CYCLE 1 AND ON DAYS 1, 8, AND 15 DURING CYCLE 2)
  2. ETOPOSIDE. [Suspect]
     Active Substance: ETOPOSIDE
     Indication: BURKITT^S LYMPHOMA
     Dosage: 60 MG/M2, CYCLIC (ON DAYS 1-5)
  3. IFOSFAMIDE. [Suspect]
     Active Substance: IFOSFAMIDE
     Indication: BURKITT^S LYMPHOMA
     Dosage: 1500 MG/M2, CYCLIC (ON DAYS 1-5) WITH SODIUM MERCAPTOETHANESULFONATE
  4. CYCLOPHOSPHAMIDE. [Suspect]
     Active Substance: CYCLOPHOSPHAMIDE
     Indication: BURKITT^S LYMPHOMA
     Dosage: 800 MG/M2, CYCLIC (ON DAY 1)
  5. CYTARABINE. [Suspect]
     Active Substance: CYTARABINE
     Dosage: 70 MG, CYCLIC (ON DAYS 1 AND 3)
     Route: 037
  6. CYCLOPHOSPHAMIDE. [Suspect]
     Active Substance: CYCLOPHOSPHAMIDE
     Dosage: 200 MG/M2, CYCLIC (ON DAYS 2-5)
  7. METHOTREXATE SODIUM. [Suspect]
     Active Substance: METHOTREXATE SODIUM
     Dosage: 12 MG, CYCLIC (ON DAY 5)
     Route: 037
  8. CYTARABINE. [Suspect]
     Active Substance: CYTARABINE
     Indication: BURKITT^S LYMPHOMA
     Dosage: 2000 MG/M2, CYCLIC (EVERY 12 HOURS ON DAYS 1 AND 4)
  9. DOXORUBICIN HCL [Suspect]
     Active Substance: DOXORUBICIN HYDROCHLORIDE
     Indication: BURKITT^S LYMPHOMA
     Dosage: 40 MG/M2, CYCLIC (ON DAY 1)
  10. METHOTREXATE SODIUM. [Suspect]
     Active Substance: METHOTREXATE SODIUM
     Indication: BURKITT^S LYMPHOMA
     Dosage: 1200 MG/M2, OVER 1 HOUR
  11. METHOTREXATE SODIUM. [Suspect]
     Active Substance: METHOTREXATE SODIUM
     Dosage: 240 MG/M2/HOUR, OVER 23 HOURS

REACTIONS (2)
  - Neutropenia [Fatal]
  - Pneumocystis jirovecii pneumonia [Fatal]
